FAERS Safety Report 4285729-0 (Version None)
Quarter: 2004Q1

REPORT INFORMATION
  Report Type: 
  Country: None (occurrence: None)
  Receive Date: 20040202
  Receipt Date: 20040119
  Transmission Date: 20041129
  Serious: Yes (Hospitalization, Other)
  Sender: FDA-Public Use
  Company Number: 200320027US

PATIENT
  Age: 65 Year
  Sex: Male
  Weight: 104.5 kg

DRUGS (10)
  1. LASIX [Suspect]
     Dosage: 40 MG QD PO
     Route: 048
     Dates: start: 20030711
  2. INTERFERON GAMMA-1B SOLUTION FOR INJECTION [Suspect]
     Indication: INTERSTITIAL LUNG DISEASE
     Dosage: 200 UG 3XW SC
     Route: 058
     Dates: start: 20021120, end: 20030818
  3. INTERFERON GAMMA-1B SOLUTION FOR INJECTION [Suspect]
     Indication: INTERSTITIAL LUNG DISEASE
     Dosage: 200 UG 3XW SC
     Route: 058
     Dates: start: 20030822, end: 20030827
  4. INTERFERON GAMMA-1B SOLUTION FOR INJECTION [Suspect]
     Indication: INTERSTITIAL LUNG DISEASE
     Dosage: 200 UG 3XW SC
     Route: 058
     Dates: start: 20030901
  5. ALDACTAZIDE [Concomitant]
  6. PREDNISONE [Concomitant]
  7. CELEXA [Concomitant]
  8. GLUCOVANCE [Concomitant]
  9. INSULIN [Concomitant]
  10. COUMADIN [Concomitant]

REACTIONS (3)
  - BACK PAIN [None]
  - CONVULSION [None]
  - LOSS OF CONSCIOUSNESS [None]
